FAERS Safety Report 19233183 (Version 1)
Quarter: 2021Q2

REPORT INFORMATION
  Report Type: Spontaneous
  Country: US (occurrence: US)
  Receive Date: 20210507
  Receipt Date: 20210507
  Transmission Date: 20210717
  Serious: No
  Sender: FDA-Public Use
  Company Number: US-MAYNE PHARMA-2021MYN000358

PATIENT

DRUGS (1)
  1. FLUOROURACIL. [Suspect]
     Active Substance: FLUOROURACIL
     Indication: SKIN CANCER
     Dosage: 0.5 %, BID
     Route: 061
     Dates: start: 20210318, end: 20210328

REACTIONS (7)
  - Insomnia [Recovering/Resolving]
  - Pain [Recovering/Resolving]
  - Penile erythema [Recovering/Resolving]
  - Genital erythema [Recovering/Resolving]
  - Scrotal swelling [Recovering/Resolving]
  - Sitting disability [Recovering/Resolving]
  - Discomfort [Not Recovered/Not Resolved]

NARRATIVE: CASE EVENT DATE: 202103
